FAERS Safety Report 9127370 (Version 1)
Quarter: 2013Q1

REPORT INFORMATION
  Report Type: Spontaneous
  Country: US (occurrence: US)
  Receive Date: 20130228
  Receipt Date: 20130228
  Transmission Date: 20140127
  Serious: No
  Sender: FDA-Public Use
  Company Number: US-GLAXOSMITHKLINE-A0971577A

PATIENT
  Sex: Female

DRUGS (1)
  1. LAMICTAL [Suspect]
     Dosage: 25MG UNKNOWN
     Route: 048
     Dates: start: 20120323

REACTIONS (3)
  - Dysphagia [Unknown]
  - Drug administration error [Unknown]
  - Therapeutic response decreased [Unknown]
